FAERS Safety Report 5634193-5 (Version None)
Quarter: 2008Q1

REPORT INFORMATION
  Report Type: 
  Country: None (occurrence: None)
  Receive Date: 20080219
  Receipt Date: 20080201
  Transmission Date: 20080703
  Serious: Yes (Hospitalization)
  Sender: FDA-Public Use
  Company Number: DSA_31403_2008

PATIENT
  Sex: Female

DRUGS (4)
  1. LORAZEPAM [Suspect]
     Dosage: (50 MG 1X; ORAL
     Route: 048
     Dates: start: 20080131, end: 20080131
  2. CITALOPRAM HYDROBROMIDE [Suspect]
     Dosage: (4600 MG 1X; ORAL)
     Route: 048
     Dates: start: 20080131, end: 20080131
  3. ORAP [Suspect]
     Dosage: (600 MG 1X ; ORAL)
     Route: 048
     Dates: start: 20080131, end: 20080131
  4. ZOLPIDEM [Suspect]
     Dosage: (100 MG 1X; ORAL)
     Route: 048
     Dates: start: 20080131, end: 20080131

REACTIONS (3)
  - INTENTIONAL OVERDOSE [None]
  - SOMNOLENCE [None]
  - VOMITING [None]
